FAERS Safety Report 4949891-6 (Version None)
Quarter: 2006Q1

REPORT INFORMATION
  Report Type: 
  Country: None (occurrence: None)
  Receive Date: 20060316
  Receipt Date: 20060228
  Transmission Date: 20060701
  Serious: Yes (Hospitalization)
  Sender: FDA-Public Use
  Company Number: 2006-BP-02366RO

PATIENT
  Age: 69 Year
  Sex: Female

DRUGS (3)
  1. DICLOFENAC (DICLOFENAC) [Suspect]
     Indication: HEADACHE
     Dosage: NR, (NR), NR
  2. LEVOTHYROXINE SODIUM [Concomitant]
  3. PROPRANOLOL [Concomitant]

REACTIONS (1)
  - TOXIC EPIDERMAL NECROLYSIS [None]
